FAERS Safety Report 9110324 (Version 5)
Quarter: 2015Q2

REPORT INFORMATION
  Report Type: Spontaneous
  Country: US (occurrence: US)
  Receive Date: 20130222
  Receipt Date: 20150507
  Transmission Date: 20150821
  Serious: Yes (Hospitalization, Other)
  Sender: FDA-Public Use
  Company Number: US-BAYER-2013-022430

PATIENT
  Age: 28 Year
  Sex: Female
  Weight: 68 kg

DRUGS (17)
  1. MORPHINE [Concomitant]
     Active Substance: MORPHINE
     Dosage: 2 MG, UNK
     Route: 042
     Dates: start: 20121114
  2. MYLANTA [ALUMINIUM OXIDE,MAGNESIUM HYDROXIDE,SIMETICONE] [Concomitant]
     Dosage: 80 MG, UNK
     Route: 048
     Dates: start: 20121114
  3. SENOKOT [Concomitant]
     Active Substance: SENNOSIDES
     Dosage: 17.2 MG, UNK
     Route: 048
     Dates: start: 20121114
  4. CLEOCIN T [Concomitant]
     Active Substance: CLINDAMYCIN PHOSPHATE
     Dosage: 1 %, PRN
     Route: 061
     Dates: start: 20121116
  5. FINACEA [Concomitant]
     Active Substance: AZELAIC ACID
     Dosage: 15% 1 APPLICATION, QID
     Route: 061
     Dates: start: 20121116
  6. KEFLEX [Concomitant]
     Active Substance: CEPHALEXIN
     Dosage: 500 MG FOUR TIMES A DAY FOR 7 DAYS
     Route: 048
     Dates: start: 20121030
  7. FENTANYL. [Concomitant]
     Active Substance: FENTANYL
     Dosage: UNK
     Dates: start: 20121115
  8. MOTRIN [Concomitant]
     Active Substance: IBUPROFEN
     Dosage: 800 MG, UNK
     Route: 048
     Dates: start: 20121115
  9. MIRENA [Suspect]
     Active Substance: LEVONORGESTREL
     Indication: CONTRACEPTION
     Dosage: 20 MCG/24HR, CONT
     Route: 015
     Dates: start: 20121221, end: 20130201
  10. PERCOCET [Concomitant]
     Active Substance: ACETAMINOPHEN\OXYCODONE HYDROCHLORIDE
     Dosage: 7.5 MG/325 MG
     Route: 048
     Dates: start: 20121115
  11. MOTRIN [Concomitant]
     Active Substance: IBUPROFEN
     Dosage: 800 MG, UNK
     Route: 048
     Dates: start: 20121116
  12. ZOFRAN [Concomitant]
     Active Substance: ONDANSETRON HYDROCHLORIDE
     Dosage: 4 MG, UNK
     Dates: start: 20121114
  13. PITOCIN [Concomitant]
     Active Substance: OXYTOCIN
     Dosage: 20 U, UNK
     Dates: start: 20121114
  14. PHENYLEPHRINE [Concomitant]
     Active Substance: PHENYLEPHRINE\PHENYLEPHRINE HYDROCHLORIDE
     Dosage: UNK
     Dates: start: 20121114
  15. KEFLEX [Concomitant]
     Active Substance: CEPHALEXIN
     Dosage: 500 MG FOUR TIMES A DAY FOR 7 DAYS
     Route: 048
     Dates: start: 20130122
  16. ANCEF [Concomitant]
     Active Substance: CEFAZOLIN SODIUM
     Dosage: 1 G, UNK
     Dates: start: 20121114
  17. PRENATAL [Concomitant]
     Active Substance: VITAMINS
     Dosage: 27-0.8 MG UNK
     Route: 048
     Dates: start: 20130122

REACTIONS (38)
  - Abdominal tenderness [None]
  - Gastrointestinal sounds abnormal [None]
  - Injury [None]
  - Anxiety [None]
  - Oxygen saturation decreased [None]
  - Shock [None]
  - Off label use of device [None]
  - Gastrointestinal inflammation [None]
  - Activities of daily living impaired [None]
  - Gastrointestinal injury [None]
  - Incision site cellulitis [None]
  - Nausea [None]
  - Tachycardia [None]
  - Emotional distress [None]
  - Anhedonia [None]
  - Unevaluable event [None]
  - Depression [None]
  - Procedural complication [None]
  - Uterine perforation [None]
  - Sepsis [None]
  - Presyncope [None]
  - Abdominal distension [None]
  - Body temperature increased [None]
  - Fear [None]
  - Abdominal pain [None]
  - Hypotension [None]
  - Vomiting [None]
  - Eructation [None]
  - Abdominal pain upper [None]
  - Post procedural complication [None]
  - Procedural pain [Recovered/Resolved]
  - Suppressed lactation [None]
  - Swelling [None]
  - Uterine pain [None]
  - Diarrhoea [None]
  - Ascites [None]
  - Malaise [None]
  - Disturbance in attention [None]

NARRATIVE: CASE EVENT DATE: 20121221
